FAERS Safety Report 11167155 (Version 4)
Quarter: 2015Q3

REPORT INFORMATION
  Report Type: Spontaneous
  Country: BR (occurrence: BR)
  Receive Date: 20150605
  Receipt Date: 20150730
  Transmission Date: 20151125
  Serious: Yes (Hospitalization)
  Sender: FDA-Public Use
  Company Number: BR-PFIZER INC-2014256050

PATIENT
  Age: 57 Year
  Sex: Female
  Weight: 59 kg

DRUGS (5)
  1. SUTENT [Suspect]
     Active Substance: SUNITINIB MALATE
     Indication: METASTATIC RENAL CELL CARCINOMA
     Dosage: 50 MG, 1X/DAY, CYCLIC (CYCLE 4X2)
     Route: 048
     Dates: start: 20140716
  2. SUTENT [Suspect]
     Active Substance: SUNITINIB MALATE
     Dosage: UNK
  3. HYDROCHLOROTHIAZIDE. [Concomitant]
     Active Substance: HYDROCHLOROTHIAZIDE
     Dosage: UNK
     Dates: start: 201504
  4. SUTENT [Suspect]
     Active Substance: SUNITINIB MALATE
     Dosage: UNK
     Dates: end: 20150503
  5. OMEPRAZOLE. [Concomitant]
     Active Substance: OMEPRAZOLE
     Dosage: UNK
     Dates: start: 20140707

REACTIONS (16)
  - Stomatitis [Recovered/Resolved]
  - Dry skin [Recovered/Resolved]
  - Lacrimation increased [Recovered/Resolved]
  - Burning sensation [Recovered/Resolved]
  - Gait disturbance [Not Recovered/Not Resolved]
  - Anaemia [Unknown]
  - Scab [Recovered/Resolved]
  - Skin hypertrophy [Recovered/Resolved]
  - Blood pressure abnormal [Unknown]
  - Hypophagia [Recovered/Resolved]
  - Hyperkeratosis [Not Recovered/Not Resolved]
  - Plantar erythema [Not Recovered/Not Resolved]
  - Eyelid oedema [Recovered/Resolved]
  - Gastrointestinal injury [Unknown]
  - Pain in extremity [Not Recovered/Not Resolved]
  - Yellow skin [Not Recovered/Not Resolved]

NARRATIVE: CASE EVENT DATE: 2014
